FAERS Safety Report 5723714-X (Version None)
Quarter: 2008Q2

REPORT INFORMATION
  Report Type: 
  Country: None (occurrence: None)
  Receive Date: 20080429
  Receipt Date: 20080429
  Transmission Date: 20081010
  Serious: No
  Sender: FDA-Public Use
  Company Number: None

PATIENT
  Age: 91 Year
  Sex: Female
  Weight: 70.3075 kg

DRUGS (1)
  1. DURAGESIC-50 [Suspect]
     Dosage: 50 MG ONCE Q 3 DAYS

REACTIONS (1)
  - DRUG INEFFECTIVE [None]
